FAERS Safety Report 11175171 (Version 1)
Quarter: 2015Q2

REPORT INFORMATION
  Report Type: Spontaneous
  Country: US (occurrence: US)
  Receive Date: 20150609
  Receipt Date: 20150609
  Transmission Date: 20150821
  Serious: Yes (Other)
  Sender: FDA-Public Use
  Company Number: US-ASTRAZENECA-2015SE54727

PATIENT
  Age: 56 Year
  Sex: Female
  Weight: 83 kg

DRUGS (10)
  1. ATENOLOL. [Suspect]
     Active Substance: ATENOLOL
     Route: 048
  2. LOSARTAN-HCT [Concomitant]
     Dosage: 100 MG/25 MG, EVERY DAY
  3. BYDUREON [Suspect]
     Active Substance: EXENATIDE
     Indication: TYPE 2 DIABETES MELLITUS
     Route: 058
     Dates: start: 2014
  4. METFORMIN [Concomitant]
     Active Substance: METFORMIN HYDROCHLORIDE
  5. GABAPENTIN. [Concomitant]
     Active Substance: GABAPENTIN
  6. AMLODIPINE [Concomitant]
     Active Substance: AMLODIPINE BESYLATE
  7. CLONIDINE. [Concomitant]
     Active Substance: CLONIDINE
  8. LANTUS [Concomitant]
     Active Substance: INSULIN GLARGINE
  9. CITALOPRAM [Concomitant]
     Active Substance: CITALOPRAM HYDROBROMIDE
  10. GLIMEPIRIDE. [Concomitant]
     Active Substance: GLIMEPIRIDE

REACTIONS (5)
  - Intentional product misuse [Unknown]
  - Gait disturbance [Unknown]
  - Fall [Unknown]
  - Peripheral swelling [Unknown]
  - Limb injury [Unknown]

NARRATIVE: CASE EVENT DATE: 201505
